FAERS Safety Report 9890640 (Version 1)
Quarter: 2014Q1

REPORT INFORMATION
  Report Type: Spontaneous
  Country: US (occurrence: None)
  Receive Date: 20140210
  Receipt Date: 20140210
  Transmission Date: 20141002
  Serious: Yes (Hospitalization)
  Sender: FDA-Public Use
  Company Number: AUR-APL-2014-01261

PATIENT
  Age: 76 Year
  Sex: 0

DRUGS (3)
  1. CLOPIDOGREL [Suspect]
     Route: 048
  2. TICLOPIDINE [Suspect]
     Route: 048
  3. METHYLPREDNISOLONE [Concomitant]

REACTIONS (9)
  - Malaise [None]
  - Chills [None]
  - Hypotension [None]
  - Oedema peripheral [None]
  - Blood urea increased [None]
  - Blood creatinine increased [None]
  - Protein total decreased [None]
  - Blood albumin decreased [None]
  - Dermatitis exfoliative [None]
